FAERS Safety Report 7584254-9 (Version None)
Quarter: 2011Q2

REPORT INFORMATION
  Report Type: 
  Country: None (occurrence: None)
  Receive Date: 20110630
  Receipt Date: 20110608
  Transmission Date: 20111010
  Serious: Yes (Hospitalization)
  Sender: FDA-Public Use
  Company Number: FR-PFIZER INC-FR-WYE-G02883409

PATIENT
  Age: 57 Year
  Sex: Male

DRUGS (7)
  1. AMBISOME [Concomitant]
     Dosage: UNK
     Route: 042
     Dates: start: 20081021, end: 20081124
  2. ZYVOX [Suspect]
     Dosage: 300 MG, 2X/DAY
     Route: 042
     Dates: start: 20081103, end: 20081112
  3. VANCOMYCIN [Suspect]
     Dosage: UNKNOWN
     Route: 042
     Dates: start: 20081013, end: 20081027
  4. VANCOMYCIN [Suspect]
     Dosage: UNKNOWN
     Route: 042
     Dates: start: 20081116, end: 20081119
  5. CANCIDAS [Concomitant]
     Dosage: UNK
     Route: 042
     Dates: start: 20081031, end: 20081124
  6. POSACONAZOLE [Concomitant]
     Dosage: UNK
     Route: 042
     Dates: start: 20081103, end: 20081124
  7. PIPERACILLIN AND TAZOBACTAM [Suspect]
     Dosage: 4 G, 3X/DAY
     Route: 042
     Dates: start: 20081021, end: 20081113

REACTIONS (3)
  - DRUG RASH WITH EOSINOPHILIA AND SYSTEMIC SYMPTOMS [None]
  - THROMBOCYTOPENIA [None]
  - RENAL FAILURE [None]
